FAERS Safety Report 9691502 (Version 2)
Quarter: 2014Q1

REPORT INFORMATION
  Report Type: Spontaneous
  Country: HU (occurrence: HU)
  Receive Date: 20131115
  Receipt Date: 20140103
  Transmission Date: 20141002
  Serious: Yes (Other)
  Sender: FDA-Public Use
  Company Number: HU-ELI_LILLY_AND_COMPANY-HU201311003018

PATIENT
  Age: 60 Year
  Sex: Female

DRUGS (6)
  1. FORSTEO [Suspect]
     Indication: OSTEOPOROSIS
     Dosage: 20 UG, QD
     Route: 058
     Dates: start: 201206, end: 20130627
  2. CALCIUM [Concomitant]
     Dosage: UNK, UNKNOWN
     Route: 065
  3. VITAMIN D3 [Concomitant]
     Dosage: UNK, UNKNOWN
     Route: 065
  4. TRENTAL [Concomitant]
     Dosage: UNK, UNKNOWN
     Route: 065
  5. ANDAXIN [Concomitant]
     Dosage: UNK, UNKNOWN
     Route: 065
  6. DONALGIN [Concomitant]
     Dosage: UNK, UNKNOWN
     Route: 065

REACTIONS (1)
  - Nephrolithiasis [Recovered/Resolved]
